FAERS Safety Report 22000673 (Version 1)
Quarter: 2023Q1

REPORT INFORMATION
  Report Type: Spontaneous
  Country: US (occurrence: None)
  Receive Date: 20230215
  Receipt Date: 20230215
  Transmission Date: 20230418
  Serious: No
  Sender: FDA-Public Use
  Company Number: None

PATIENT
  Age: 59 Year
  Sex: Female
  Weight: 54 kg

DRUGS (6)
  1. PROLIA [Suspect]
     Active Substance: DENOSUMAB
     Indication: Osteoporosis
     Dates: start: 20220614
  2. SYNTHROID [Concomitant]
     Active Substance: LEVOTHYROXINE SODIUM
  3. VITAMIN D NOS [Concomitant]
     Active Substance: VITAMIN D NOS
  4. CALCIUM [Concomitant]
     Active Substance: CALCIUM
  5. MAGNESIUM [Concomitant]
     Active Substance: MAGNESIUM
  6. BCOMPLEX [Concomitant]

REACTIONS (8)
  - Myalgia [None]
  - Pruritus [None]
  - Pyrexia [None]
  - Illness [None]
  - COVID-19 [None]
  - Gastroenteritis viral [None]
  - Immune system disorder [None]
  - Injection related reaction [None]

NARRATIVE: CASE EVENT DATE: 20230211
